FAERS Safety Report 6195123-3 (Version None)
Quarter: 2009Q2

REPORT INFORMATION
  Report Type: 
  Country: None (occurrence: None)
  Receive Date: 20090519
  Receipt Date: 20090423
  Transmission Date: 20091009
  Serious: Yes (Other)
  Sender: FDA-Public Use
  Company Number: JP-JNJFOC-20090405983

PATIENT
  Sex: Female
  Weight: 41 kg

DRUGS (10)
  1. ITRIZOLE [Suspect]
     Route: 042
  2. ITRIZOLE [Suspect]
     Indication: DRUG USE FOR UNKNOWN INDICATION
     Route: 042
  3. MEROPEN [Concomitant]
     Route: 042
  4. LASIX [Concomitant]
     Indication: RENAL FAILURE
     Route: 042
  5. GASTER [Concomitant]
     Indication: PROPHYLAXIS
     Route: 042
  6. GLOVENIN [Concomitant]
     Route: 042
  7. PREDONINE [Concomitant]
     Route: 042
  8. NEOPHAGEN C [Concomitant]
     Route: 042
  9. PREDONINE [Concomitant]
     Route: 048
  10. BISOLVON [Concomitant]
     Route: 042

REACTIONS (1)
  - RENAL FAILURE [None]
